FAERS Safety Report 24673616 (Version 1)
Quarter: 2024Q4

REPORT INFORMATION
  Report Type: Other
  Country: AU (occurrence: AU)
  Receive Date: 20241128
  Receipt Date: 20241128
  Transmission Date: 20250114
  Serious: Yes (Other)
  Sender: LUPIN
  Company Number: AU-LUPIN EUROPE GMBH-2024-11416

PATIENT

DRUGS (2)
  1. ARIPIPRAZOLE [Suspect]
     Active Substance: ARIPIPRAZOLE
     Indication: Product used for unknown indication
     Dosage: UNK
     Route: 065
  2. ABILIFY MAINTENA [Suspect]
     Active Substance: ARIPIPRAZOLE
     Indication: Product used for unknown indication
     Dosage: UNK
     Route: 065

REACTIONS (9)
  - Anger [Unknown]
  - Chest pain [Unknown]
  - Depression [Unknown]
  - Hallucination [Unknown]
  - Nervousness [Unknown]
  - Nightmare [Unknown]
  - Screaming [Unknown]
  - Self-destructive behaviour [Unknown]
  - Refusal of treatment by patient [Unknown]
